FAERS Safety Report 10880638 (Version 1)
Quarter: 2015Q1

REPORT INFORMATION
  Report Type: Spontaneous
  Country: US (occurrence: US)
  Receive Date: 20150303
  Receipt Date: 20150303
  Transmission Date: 20150721
  Serious: Yes (Other)
  Sender: FDA-Public Use
  Company Number: US-BEH-2015049187

PATIENT
  Sex: Female
  Weight: 27 kg

DRUGS (8)
  1. EPIPEN [Concomitant]
     Active Substance: EPINEPHRINE
  2. TYLENOL [Concomitant]
     Active Substance: ACETAMINOPHEN
  3. NUMBNESS CREAM [Concomitant]
  4. HIZENTRA [Suspect]
     Active Substance: HUMAN IMMUNOGLOBULIN G
     Route: 058
  5. MIRALAX [Concomitant]
     Active Substance: POLYETHYLENE GLYCOL 3350
  6. GUMMY VITAMINS [Concomitant]
  7. HIZENTRA [Suspect]
     Active Substance: HUMAN IMMUNOGLOBULIN G
     Indication: IMMUNODEFICIENCY
     Route: 058
  8. LIDOCAINE/PRILOCAINE [Concomitant]

REACTIONS (3)
  - Meningitis aseptic [Unknown]
  - Headache [Unknown]
  - Vomiting [Unknown]
